FAERS Safety Report 6582324-5 (Version None)
Quarter: 2010Q1

REPORT INFORMATION
  Report Type: 
  Country: None (occurrence: None)
  Receive Date: 20100212
  Receipt Date: 20100212
  Transmission Date: 20100710
  Serious: Yes (Life-Threatening)
  Sender: FDA-Public Use
  Company Number: None

PATIENT
  Age: 78 Year
  Sex: Male

DRUGS (2)
  1. IODIXANOL [Suspect]
     Indication: CARDIOVASCULAR DISORDER
     Dosage: 30 ML
     Dates: start: 20091015, end: 20091015
  2. IODIXANOL [Suspect]
     Indication: SURGERY
     Dosage: 30 ML
     Dates: start: 20091015, end: 20091015

REACTIONS (2)
  - ANAPHYLACTIC REACTION [None]
  - TACHYPNOEA [None]
